FAERS Safety Report 5573366-7 (Version None)
Quarter: 2007Q4

REPORT INFORMATION
  Report Type: 
  Country: None (occurrence: None)
  Receive Date: 20071226
  Receipt Date: 20071217
  Transmission Date: 20080405
  Serious: Yes (Other)
  Sender: FDA-Public Use
  Company Number: US-JNJFOC-20071005224

PATIENT
  Sex: Female

DRUGS (13)
  1. REMICADE [Suspect]
     Route: 042
  2. REMICADE [Suspect]
     Indication: VASCULITIS
     Route: 042
  3. PREDNISONE [Suspect]
     Indication: VASCULITIS
     Route: 048
  4. LAMICTAL [Concomitant]
  5. ACTONEL [Concomitant]
  6. AMITRIPTLINE HCL [Concomitant]
  7. VALTREX [Concomitant]
  8. LASIX [Concomitant]
  9. K-DUR 10 [Concomitant]
  10. KADIAN [Concomitant]
  11. METHYLIN [Concomitant]
  12. CONCERTA [Concomitant]
  13. DILTIAZEM CD [Concomitant]

REACTIONS (2)
  - BRONCHOPULMONARY ASPERGILLOSIS [None]
  - PNEUMONIA STAPHYLOCOCCAL [None]
